FAERS Safety Report 6913721-3 (Version None)
Quarter: 2010Q3

REPORT INFORMATION
  Report Type: 
  Country: None (occurrence: None)
  Receive Date: 20100809
  Receipt Date: 20100730
  Transmission Date: 20110219
  Serious: Yes (Other)
  Sender: FDA-Public Use
  Company Number: US-ASTRAZENECA-2009UW07283

PATIENT
  Age: 47 Year
  Sex: Female
  Weight: 55.8 kg

DRUGS (11)
  1. NEXIUM [Suspect]
     Indication: GASTROOESOPHAGEAL REFLUX DISEASE
     Route: 048
     Dates: start: 20060711
  2. NEXIUM [Suspect]
     Route: 048
  3. EVISTA [Concomitant]
  4. ASPIRIN [Concomitant]
  5. FOLIC ACID [Concomitant]
  6. XANAX [Concomitant]
  7. FLEXERIL [Concomitant]
  8. ZOLOFT [Concomitant]
  9. LISINOPRIL [Concomitant]
  10. CALCIUM [Concomitant]
  11. FISH OIL [Concomitant]

REACTIONS (8)
  - CHILLS [None]
  - DEHYDRATION [None]
  - DRUG INEFFECTIVE [None]
  - DYSPEPSIA [None]
  - FIBROMYALGIA [None]
  - HEADACHE [None]
  - MYALGIA [None]
  - SYNCOPE [None]
